FAERS Safety Report 8362119 (Version 3)
Quarter: 2013Q2

REPORT INFORMATION
  Report Type: Report from Study
  Country: ZA (occurrence: ZA)
  Receive Date: 20120130
  Receipt Date: 20130514
  Transmission Date: 20140414
  Serious: Yes (Hospitalization, Other)
  Sender: FDA-Public Use
  Company Number: PHHY2012ZA007407

PATIENT
  Age: 65 Year
  Sex: Female

DRUGS (6)
  1. ACLASTA [Suspect]
     Dosage: 5 MG/100 ML
     Route: 042
     Dates: start: 201102
  2. ACLASTA [Suspect]
     Dosage: UNK UKN, UNK
     Route: 042
     Dates: start: 201202
  3. AMLOC [Concomitant]
     Indication: HYPERTENSION
  4. FORTZAAR [Concomitant]
     Indication: HYPERTENSION
  5. ELTROXIN [Concomitant]
     Indication: THYROID DISORDER
  6. HUMIRA [Concomitant]
     Indication: RHEUMATOID ARTHRITIS

REACTIONS (8)
  - Gait disturbance [Unknown]
  - Gastric ulcer [Unknown]
  - Hiatus hernia [Unknown]
  - Abdominal discomfort [Unknown]
  - Gastric perforation [Unknown]
  - Vomiting [Unknown]
  - Diarrhoea [Unknown]
  - Dehydration [Unknown]
